FAERS Safety Report 13199708 (Version 8)
Quarter: 2017Q3

REPORT INFORMATION
  Report Type: Report from Study
  Country: US (occurrence: US)
  Receive Date: 20170208
  Receipt Date: 20170719
  Transmission Date: 20171127
  Serious: Yes (Hospitalization, Other)
  Sender: FDA-Public Use
  Company Number: US-GILEAD-2017-0257087

PATIENT
  Age: 34 Year
  Sex: Female

DRUGS (5)
  1. AMBRISENTAN [Suspect]
     Active Substance: AMBRISENTAN
     Indication: PRODUCT USED FOR UNKNOWN INDICATION
     Dosage: 10 MG, QD
     Route: 065
     Dates: start: 20160912
  2. UPTRAVI [Suspect]
     Active Substance: SELEXIPAG
     Indication: PRODUCT USED FOR UNKNOWN INDICATION
     Dosage: 200 UG, BID
     Route: 065
  3. UPTRAVI [Suspect]
     Active Substance: SELEXIPAG
     Dosage: 400 UG, BID
     Route: 065
  4. WARFARIN [Concomitant]
     Active Substance: WARFARIN
  5. REVATIO [Concomitant]
     Active Substance: SILDENAFIL CITRATE

REACTIONS (18)
  - Cerebrovascular accident [Unknown]
  - Cough [Unknown]
  - Vomiting [Unknown]
  - Hypotension [Unknown]
  - Malaise [Unknown]
  - Dyspnoea [Unknown]
  - Transient ischaemic attack [Unknown]
  - Feeling abnormal [Unknown]
  - Nausea [Unknown]
  - Chest pain [Unknown]
  - Dizziness [Unknown]
  - Product supply issue [Not Recovered/Not Resolved]
  - Headache [Unknown]
  - Irritability [Unknown]
  - Cerebrovascular accident [Not Recovered/Not Resolved]
  - Photophobia [Not Recovered/Not Resolved]
  - Eye pain [Not Recovered/Not Resolved]
  - Pulmonary vascular disorder [Not Recovered/Not Resolved]

NARRATIVE: CASE EVENT DATE: 201701
